FAERS Safety Report 5442202-1 (Version None)
Quarter: 2007Q3

REPORT INFORMATION
  Report Type: 
  Country: None (occurrence: None)
  Receive Date: 20070731
  Receipt Date: 20070605
  Transmission Date: 20080115
  Serious: No
  Sender: FDA-Public Use
  Company Number: US200705001316

PATIENT
  Age: 73 Year
  Sex: Male

DRUGS (10)
  1. BYETTA [Suspect]
     Indication: TYPE 2 DIABETES MELLITUS
     Dosage: 5 UG, 2/D, SUBCUTANEOUS
     Route: 058
     Dates: start: 20070425
  2. WARFARIN SODIUM [Concomitant]
  3. METFORMIN HCL [Concomitant]
  4. GLYBURIDE [Concomitant]
  5. ENALAPRIL MALEATE [Concomitant]
  6. TRIAMTERENE W/EPITIZIDE (EPITIZIDE, TRIAMTERENE) [Concomitant]
  7. METOPROLOL TARTRATE [Concomitant]
  8. DIGOXIN [Concomitant]
  9. VITRENA (ESTRADIOL VALERATE, MEDROXYPROGESTERONE ACETATE) [Concomitant]
  10. ACTOS [Concomitant]

REACTIONS (4)
  - BLOOD GLUCOSE INCREASED [None]
  - CONTUSION [None]
  - DRUG EFFECT DECREASED [None]
  - INJECTION SITE HAEMORRHAGE [None]
